FAERS Safety Report 19926759 (Version 1)
Quarter: 2021Q4

REPORT INFORMATION
  Report Type: Report from Study
  Country: None (occurrence: US)
  Receive Date: 20211006
  Receipt Date: 20211006
  Transmission Date: 20220303
  Serious: Yes (Other)
  Sender: FDA-Public Use
  Company Number: US-ABBVIE-21K-163-4102286-00

PATIENT
  Sex: Female

DRUGS (4)
  1. ORILISSA [Suspect]
     Active Substance: ELAGOLIX SODIUM
     Indication: Product used for unknown indication
     Route: 058
     Dates: start: 202101, end: 202104
  2. ORILISSA [Suspect]
     Active Substance: ELAGOLIX SODIUM
     Route: 058
     Dates: start: 2021
  3. PFIZER-BIONTECH COVID-19 VACCINE [Concomitant]
     Active Substance: TOZINAMERAN
     Indication: COVID-19 immunisation
     Route: 030
     Dates: start: 20210309, end: 20210309
  4. PFIZER-BIONTECH COVID-19 VACCINE [Concomitant]
     Active Substance: TOZINAMERAN
     Route: 030
     Dates: start: 20210330, end: 20210330

REACTIONS (2)
  - Endometriosis [Unknown]
  - General symptom [Unknown]

NARRATIVE: CASE EVENT DATE: 20210101
